FAERS Safety Report 8140594-6 (Version None)
Quarter: 2012Q1

REPORT INFORMATION
  Report Type: 
  Country: None (occurrence: None)
  Receive Date: 20120216
  Receipt Date: 20120214
  Transmission Date: 20120608
  Serious: Yes (Hospitalization)
  Sender: FDA-Public Use
  Company Number: DK-AMGEN-DNKSP2012009547

PATIENT
  Age: 75 Year
  Sex: Female
  Weight: 53 kg

DRUGS (9)
  1. RITUXIMAB [Suspect]
     Indication: DIFFUSE LARGE B-CELL LYMPHOMA
     Dosage: 600 MG, UNK
     Route: 042
     Dates: start: 20120124
  2. VINCRISTINE [Suspect]
     Indication: DIFFUSE LARGE B-CELL LYMPHOMA
     Dosage: 2 MG, UNK
     Route: 042
     Dates: start: 20120124
  3. PREDNISONE TAB [Suspect]
     Indication: DIFFUSE LARGE B-CELL LYMPHOMA
     Dosage: 500 MG, UNK
     Route: 048
     Dates: start: 20120124
  4. SULFAMETHOXAZOL [Concomitant]
     Dosage: UNK
     Route: 048
     Dates: start: 20120119, end: 20120130
  5. NEUPOGEN [Suspect]
     Indication: DIFFUSE LARGE B-CELL LYMPHOMA
     Dosage: 6 MG, UNK
     Route: 058
     Dates: start: 20120126
  6. VALACYCLOVIR HYDROCHLORIDE [Concomitant]
     Dosage: 1000 MG, UNK
     Route: 048
     Dates: start: 20120119, end: 20120130
  7. CYCLOPHOSPHAMIDE [Suspect]
     Indication: DIFFUSE LARGE B-CELL LYMPHOMA
     Dosage: 1137 MG, UNK
     Route: 042
     Dates: start: 20120124
  8. DOXORUBICIN HCL [Suspect]
     Indication: DIFFUSE LARGE B-CELL LYMPHOMA
     Dosage: 76 MG, UNK
     Route: 042
     Dates: start: 20120124
  9. RAMIPRIL [Concomitant]
     Dosage: 1.25 MG, UNK
     Dates: end: 20120130

REACTIONS (2)
  - VOMITING [None]
  - SYNCOPE [None]
